FAERS Safety Report 20781889 (Version 1)
Quarter: 2022Q2

REPORT INFORMATION
  Report Type: Report from Study
  Country: GB (occurrence: GB)
  Receive Date: 20220504
  Receipt Date: 20220504
  Transmission Date: 20220721
  Serious: Yes (Hospitalization, Other)
  Sender: FDA-Public Use
  Company Number: GB-ROCHE-3016749

PATIENT
  Age: 65 Year
  Sex: Female

DRUGS (35)
  1. CAPECITABINE [Suspect]
     Active Substance: CAPECITABINE
     Indication: Breast cancer metastatic
     Dosage: 1150 MILLIGRAM
     Route: 048
     Dates: start: 20211013
  2. DOCETAXEL [Suspect]
     Active Substance: DOCETAXEL
     Indication: Breast cancer metastatic
     Dosage: 108 MILLIGRAM, 3XW
     Route: 042
     Dates: start: 20170620, end: 20170801
  3. DOCETAXEL [Suspect]
     Active Substance: DOCETAXEL
     Dosage: 88 MILLIGRAM, 3XW
     Route: 042
     Dates: start: 20170822, end: 20171003
  4. TRASTUZUMAB [Suspect]
     Active Substance: TRASTUZUMAB
     Indication: Breast cancer metastatic
     Dosage: 283.5 MILLIGRAM
     Route: 041
     Dates: start: 20171003, end: 20180502
  5. TRASTUZUMAB [Suspect]
     Active Substance: TRASTUZUMAB
     Dosage: 315 MILLIGRAM
     Route: 041
     Dates: start: 20170711, end: 20170801
  6. TRASTUZUMAB [Suspect]
     Active Substance: TRASTUZUMAB
     Dosage: 420 MILLIGRAM
     Route: 041
     Dates: start: 20170619, end: 20170619
  7. TRASTUZUMAB [Suspect]
     Active Substance: TRASTUZUMAB
     Dosage: 294 MILLIGRAM
     Route: 041
     Dates: start: 20170822, end: 20170916
  8. TRASTUZUMAB [Suspect]
     Active Substance: TRASTUZUMAB
     Dosage: 283.5 MILLIGRAM
     Route: 041
     Dates: start: 20180709, end: 20180820
  9. TRASTUZUMAB [Suspect]
     Active Substance: TRASTUZUMAB
     Dosage: 388.5 MILLIGRAM
     Route: 041
     Dates: start: 20180618, end: 20180618
  10. NERATINIB [Suspect]
     Active Substance: NERATINIB
     Indication: Breast cancer metastatic
     Dosage: 240 MILLIGRAM, QD
     Route: 048
     Dates: start: 20211013
  11. PERTUZUMAB [Suspect]
     Active Substance: PERTUZUMAB
     Indication: Breast cancer metastatic
     Dosage: 420 MILLIGRAM, 3XW
     Route: 042
     Dates: start: 20170711, end: 20180502
  12. PERTUZUMAB [Suspect]
     Active Substance: PERTUZUMAB
     Dosage: 420 MILLIGRAM, 3XW
     Route: 042
     Dates: start: 20180618, end: 20180618
  13. PERTUZUMAB [Suspect]
     Active Substance: PERTUZUMAB
     Dosage: 420 MILLIGRAM, 3XW
     Route: 042
     Dates: start: 20170619, end: 20170619
  14. PERTUZUMAB [Suspect]
     Active Substance: PERTUZUMAB
     Dosage: 420 MILLIGRAM, 3XW
     Route: 042
     Dates: start: 20180709, end: 20181024
  15. ADO-TRASTUZUMAB EMTANSINE [Suspect]
     Active Substance: ADO-TRASTUZUMAB EMTANSINE
     Indication: Breast cancer metastatic
     Dosage: 200 MILLIGRAM, 3XW
     Route: 042
     Dates: start: 20181122, end: 20201217
  16. ADO-TRASTUZUMAB EMTANSINE [Suspect]
     Active Substance: ADO-TRASTUZUMAB EMTANSINE
     Dosage: 180 MILLIGRAM, 3XW
     Route: 042
     Dates: start: 20201217, end: 20210827
  17. ADO-TRASTUZUMAB EMTANSINE [Suspect]
     Active Substance: ADO-TRASTUZUMAB EMTANSINE
     Dosage: 200 MILLIGRAM, 3XW
     Route: 042
     Dates: start: 20200514, end: 20201126
  18. ADO-TRASTUZUMAB EMTANSINE [Suspect]
     Active Substance: ADO-TRASTUZUMAB EMTANSINE
     Dosage: 180 MILLIGRAM, 3XW
     Route: 042
     Dates: start: 20200225, end: 20200225
  19. COTRIMOXAZOLE [Concomitant]
     Active Substance: SULFAMETHOXAZOLE\TRIMETHOPRIM
     Dosage: 480 MILLIGRAM, QD
     Route: 048
     Dates: start: 20170620
  20. DENOSUMAB [Concomitant]
     Active Substance: DENOSUMAB
     Dosage: UNK, MONTHLY
     Route: 058
  21. DEXAMETHASONE [Concomitant]
     Active Substance: DEXAMETHASONE
     Dosage: 8 MILLIGRAM
     Route: 048
     Dates: start: 20170620, end: 20171003
  22. DEXAMETHASONE [Concomitant]
     Active Substance: DEXAMETHASONE
     Dosage: 4 MILLIGRAM, BID
     Route: 048
     Dates: start: 20201223, end: 20210102
  23. DEXAMETHASONE [Concomitant]
     Active Substance: DEXAMETHASONE
     Dosage: 4 MILLIGRAM, QD
     Route: 048
     Dates: start: 20210103, end: 20210103
  24. HYPROMELLOSES [Concomitant]
     Active Substance: HYPROMELLOSES
     Dosage: UNK
     Route: 065
     Dates: start: 20190410, end: 20190903
  25. LOPERAMIDE [Concomitant]
     Active Substance: LOPERAMIDE
     Dosage: 16 MILLIGRAM
     Route: 048
     Dates: start: 20170705, end: 20171003
  26. LOPERAMIDE [Concomitant]
     Active Substance: LOPERAMIDE
     Dosage: UNK
     Route: 048
     Dates: start: 20170927
  27. LOPERAMIDE [Concomitant]
     Active Substance: LOPERAMIDE
     Dosage: UNK
     Route: 048
     Dates: start: 201712
  28. METOCLOPRAMIDE [Concomitant]
     Active Substance: METOCLOPRAMIDE
     Dosage: 10 MILLIGRAM
     Route: 048
     Dates: start: 20170620
  29. MORPHINE SULFATE [Concomitant]
     Active Substance: MORPHINE SULFATE
     Dosage: UNK
     Route: 048
  30. ACETAMINOPHEN [Concomitant]
     Active Substance: ACETAMINOPHEN
     Dosage: UNK
     Route: 048
  31. SIMVASTATIN [Concomitant]
     Active Substance: SIMVASTATIN
     Dosage: UNK
  32. ERGOCALCIFEROL [Concomitant]
     Active Substance: ERGOCALCIFEROL
     Dosage: UNK
  33. MORPHINE SULFATE [Concomitant]
     Active Substance: MORPHINE SULFATE
     Dosage: 10 MILLIGRAM
     Route: 048
  34. RAMIPRIL [Concomitant]
     Active Substance: RAMIPRIL
     Dosage: UNK
     Route: 048
     Dates: start: 20171018
  35. IRBESARTAN [Concomitant]
     Active Substance: IRBESARTAN
     Dosage: UNK
     Route: 048
     Dates: start: 20180404

REACTIONS (2)
  - Diarrhoea [Recovering/Resolving]
  - Partial seizures [Recovering/Resolving]

NARRATIVE: CASE EVENT DATE: 20211220
